FAERS Safety Report 19952679 (Version 1)
Quarter: 2021Q4

REPORT INFORMATION
  Report Type: Spontaneous
  Country: NL (occurrence: NL)
  Receive Date: 20211014
  Receipt Date: 20211014
  Transmission Date: 20220303
  Serious: Yes (Hospitalization)
  Sender: FDA-Public Use
  Company Number: None

PATIENT
  Sex: Female
  Weight: 55 kg

DRUGS (4)
  1. CAPECITABINE [Suspect]
     Active Substance: CAPECITABINE
     Indication: Carcinoid tumour of the appendix
     Dosage: THERAPY START DATE: ASKU, THERAPY END DATE :ASKU
  2. CAPECITABINE [Suspect]
     Active Substance: CAPECITABINE
     Indication: Signet-ring cell carcinoma
     Dosage: 2 DOSAGE FORMS DAILY;
     Route: 048
     Dates: start: 20210825, end: 20210902
  3. CETOMACROGOL  Brand name not specified [Concomitant]
     Dosage: THERAPY START DATE: ASKU, THERAPY END DATE :ASKU
  4. OXALIPLATINE / Brand name not specified [Concomitant]
     Dosage: 1 MG/MG (MILLIGRAM PER MILLIGRAM)

REACTIONS (1)
  - Mucosal inflammation [Recovered/Resolved]
